FAERS Safety Report 11103246 (Version 1)
Quarter: 2015Q2

REPORT INFORMATION
  Report Type: Spontaneous
  Country: US (occurrence: US)
  Receive Date: 20150511
  Receipt Date: 20150511
  Transmission Date: 20150821
  Serious: No
  Sender: FDA-Public Use
  Company Number: US-TEVA-551237USA

PATIENT
  Age: 70 Year
  Sex: Female

DRUGS (1)
  1. ESZOPICLONE. [Suspect]
     Active Substance: ESZOPICLONE
     Indication: INSOMNIA
     Dosage: 3 MILLIGRAM DAILY; AT NIGHT
     Route: 048
     Dates: start: 20150309, end: 20150326

REACTIONS (17)
  - Oropharyngeal pain [Recovered/Resolved]
  - Oral mucosal blistering [Recovered/Resolved]
  - Dry skin [Not Recovered/Not Resolved]
  - Pollakiuria [Unknown]
  - Drug dispensing error [Unknown]
  - Dysphonia [Recovered/Resolved]
  - Ocular hyperaemia [Recovered/Resolved]
  - Musculoskeletal stiffness [Not Recovered/Not Resolved]
  - Chills [Unknown]
  - Wrong technique in drug usage process [Unknown]
  - Erythema [Recovered/Resolved]
  - Pruritus [Not Recovered/Not Resolved]
  - Eye pruritus [Not Recovered/Not Resolved]
  - Eyelid dermatochalasis [Recovered/Resolved]
  - Rash erythematous [Recovered/Resolved]
  - Eyelid oedema [Not Recovered/Not Resolved]
  - Product substitution issue [Unknown]

NARRATIVE: CASE EVENT DATE: 20150310
